FAERS Safety Report 10081016 (Version 1)
Quarter: 2014Q2

REPORT INFORMATION
  Report Type: Spontaneous
  Country: JP (occurrence: JP)
  Receive Date: 20140416
  Receipt Date: 20140416
  Transmission Date: 20141212
  Serious: Yes (Hospitalization)
  Sender: FDA-Public Use
  Company Number: JP-SA-2014SA047057

PATIENT
  Age: 70 Year
  Sex: Male

DRUGS (1)
  1. BCG FOR IMMUNOTHERAPY [Suspect]
     Indication: BLADDER CANCER
     Route: 043

REACTIONS (5)
  - Dermatomyositis [Recovering/Resolving]
  - Dysphagia [Recovering/Resolving]
  - Blood creatine phosphokinase increased [Unknown]
  - Muscular weakness [Recovering/Resolving]
  - Rash [Recovering/Resolving]
